FAERS Safety Report 25396561 (Version 2)
Quarter: 2025Q2

REPORT INFORMATION
  Report Type: Spontaneous
  Country: JP (occurrence: JP)
  Receive Date: 20250604
  Receipt Date: 20250611
  Transmission Date: 20250716
  Serious: Yes (Hospitalization)
  Sender: EISAI
  Company Number: JP-Eisai-202411522_DVG_P_1

PATIENT
  Age: 32 Year
  Sex: Female

DRUGS (1)
  1. DAYVIGO [Suspect]
     Active Substance: LEMBOREXANT
     Indication: Insomnia

REACTIONS (4)
  - Premature labour [Unknown]
  - Exposure during pregnancy [Unknown]
  - Off label use [Unknown]
  - Off label use [Unknown]
